FAERS Safety Report 7783545-6 (Version None)
Quarter: 2011Q3

REPORT INFORMATION
  Report Type: 
  Country: None (occurrence: None)
  Receive Date: 20110926
  Receipt Date: 20110912
  Transmission Date: 20111222
  Serious: Yes (Hospitalization)
  Sender: FDA-Public Use
  Company Number: 7081991

PATIENT
  Age: 44 Year
  Sex: Female

DRUGS (2)
  1. LEVOTHYROXINE SODIUM [Suspect]
     Dosage: ORAL, 125 MCG, ORAL
     Route: 048
     Dates: start: 20040101
  2. LEVOTHYROXINE SODIUM [Suspect]
     Dosage: ORAL, 125 MCG, ORAL
     Route: 048

REACTIONS (7)
  - DYSPNOEA [None]
  - RALES [None]
  - THYROTOXIC CRISIS [None]
  - EJECTION FRACTION DECREASED [None]
  - HYPERTENSION [None]
  - PULMONARY OEDEMA [None]
  - CARDIOMYOPATHY [None]
